FAERS Safety Report 25161873 (Version 5)
Quarter: 2025Q4

REPORT INFORMATION
  Report Type: Report from Study
  Country: JP (occurrence: JP)
  Receive Date: 20250404
  Receipt Date: 20251208
  Transmission Date: 20260118
  Serious: Yes (Other)
  Sender: EISAI
  Company Number: JP-Eisai-202416837_LEQ_P_1

PATIENT
  Age: 77 Year
  Sex: Female
  Weight: 63.7 kg

DRUGS (11)
  1. LEQEMBI [Suspect]
     Active Substance: LECANEMAB-IRMB
     Indication: Dementia Alzheimer^s type
     Route: 041
     Dates: start: 20250324
  2. DEXAMETHASONE SODIUM PHOSPHATE [Suspect]
     Active Substance: DEXAMETHASONE SODIUM PHOSPHATE
     Indication: Product used for unknown indication
     Dosage: FREQUENCY UNKNOWN
  3. MINODRONIC ACID [Concomitant]
     Active Substance: MINODRONIC ACID
  4. AMLODIPINE [Concomitant]
     Active Substance: AMLODIPINE BESYLATE
  5. CALONAL [Concomitant]
     Active Substance: ACETAMINOPHEN
  6. POLARAMINE [Concomitant]
     Active Substance: DEXCHLORPHENIRAMINE MALEATE
  7. GASTER [Concomitant]
     Active Substance: FAMOTIDINE
  8. DAYVIGO [Concomitant]
     Active Substance: LEMBOREXANT
  9. ATORVASTATIN [Concomitant]
     Active Substance: ATORVASTATIN
  10. MIRABEGRON [Concomitant]
     Active Substance: MIRABEGRON
  11. ENTRESTO [Concomitant]
     Active Substance: SACUBITRIL\VALSARTAN

REACTIONS (1)
  - Cerebellar infarction [Recovering/Resolving]

NARRATIVE: CASE EVENT DATE: 20250327
